FAERS Safety Report 4710167-3 (Version None)
Quarter: 2005Q3

REPORT INFORMATION
  Report Type: 
  Country: None (occurrence: None)
  Receive Date: 20050708
  Receipt Date: 20050708
  Transmission Date: 20060218
  Serious: Yes (Disabling)
  Sender: FDA-Public Use
  Company Number: None

PATIENT
  Age: 46 Year
  Sex: Female

DRUGS (9)
  1. TOPAMAX [Suspect]
     Indication: FIBROMYALGIA
     Dosage: 50 MG QHS X 2 NIGHTS PO
     Route: 048
     Dates: start: 20050611, end: 20050612
  2. TOPAMAX [Suspect]
     Indication: MIGRAINE
     Dosage: 50 MG QHS X 2 NIGHTS PO
     Route: 048
     Dates: start: 20050611, end: 20050612
  3. OXYCONTIN [Concomitant]
  4. DIAZEPAM [Concomitant]
  5. CLONAZEPAM [Concomitant]
  6. AMITRIPTYLINE HCL [Concomitant]
  7. FIORINAL [Concomitant]
  8. ZOLOFT [Concomitant]
  9. CIMETIDINE [Concomitant]

REACTIONS (3)
  - ASTHENIA [None]
  - GRIP STRENGTH DECREASED [None]
  - PARESIS [None]
